FAERS Safety Report 8961032 (Version 3)
Quarter: 2012Q4

REPORT INFORMATION
  Report Type: 
  Country: US (occurrence: US)
  Receive Date: 20121212
  Receipt Date: 20121221
  Transmission Date: 20130627
  Serious: Yes (Hospitalization, Other)
  Sender: FDA-Public Use
  Company Number: US-TEVA-375300USA

PATIENT
  Sex: Female

DRUGS (2)
  1. ATENOLOL [Suspect]
     Indication: HYPERTENSION
     Dates: end: 201101
  2. VITAMINS [Concomitant]

REACTIONS (4)
  - Intestinal haemorrhage [Unknown]
  - Colitis [Unknown]
  - Rectal haemorrhage [Unknown]
  - Blood pressure increased [Unknown]
